FAERS Safety Report 8020481-4 (Version None)
Quarter: 2012Q1

REPORT INFORMATION
  Report Type: 
  Country: None (occurrence: None)
  Receive Date: 20120103
  Receipt Date: 20111223
  Transmission Date: 20120608
  Serious: Yes (Death)
  Sender: FDA-Public Use
  Company Number: IE-AMGEN-IRLSP2011069151

PATIENT
  Sex: Female

DRUGS (5)
  1. SALAMOL                            /00139501/ [Concomitant]
     Dosage: 2 MUG, PRN
  2. TEVANATE [Concomitant]
     Dosage: 70 MG, QWK
  3. FLUTICASONE PROPIONATE/SALMETEROL [Concomitant]
     Dosage: 500 MUG, UNK
  4. PREDNISOLONE [Concomitant]
     Dosage: 30 MG, 5 TIMES/WK
  5. ARANESP [Suspect]
     Indication: PRODUCT USED FOR UNKNOWN INDICATION
     Dosage: 500 MUG, Q3WK
     Route: 058
     Dates: start: 20110819

REACTIONS (1)
  - DEATH [None]
